FAERS Safety Report 10620048 (Version 1)
Quarter: 2014Q4

REPORT INFORMATION
  Report Type: Spontaneous
  Country: US (occurrence: None)
  Receive Date: 20141201
  Receipt Date: 20141201
  Transmission Date: 20150529
  Serious: Yes (Life-Threatening, Disabling)
  Sender: FDA-Public Use
  Company Number: None

PATIENT
  Age: 58 Year
  Sex: Male
  Weight: 81.65 kg

DRUGS (1)
  1. VALSARTAN AND HYDROCHLOROTHIAZIDE [Suspect]
     Active Substance: HYDROCHLOROTHIAZIDE\VALSARTAN
     Indication: HYPERTENSION
     Dosage: 1 TABLET ONCE DAILY TAKEN BY MOUTH
     Route: 048
     Dates: start: 20141108, end: 20141114

REACTIONS (12)
  - Asthenia [None]
  - Headache [None]
  - Visual impairment [None]
  - Vitreous floaters [None]
  - Drug ineffective [None]
  - Hypertension [None]
  - Product quality issue [None]
  - Fatigue [None]
  - Malaise [None]
  - Irritability [None]
  - Activities of daily living impaired [None]
  - Product substitution issue [None]

NARRATIVE: CASE EVENT DATE: 20141114
